FAERS Safety Report 6457809-2 (Version None)
Quarter: 2009Q4

REPORT INFORMATION
  Report Type: 
  Country: None (occurrence: None)
  Receive Date: 20091125
  Receipt Date: 20091118
  Transmission Date: 20100525
  Serious: Yes (Other)
  Sender: FDA-Public Use
  Company Number: US-ELI_LILLY_AND_COMPANY-US200911004776

PATIENT
  Sex: Female
  Weight: 67.12 kg

DRUGS (7)
  1. BYETTA [Suspect]
     Indication: TYPE 2 DIABETES MELLITUS
     Dosage: 5 UG, 2/D
     Route: 058
     Dates: start: 20060901, end: 20061001
  2. BYETTA [Suspect]
     Dosage: 10 UG, 2/D
     Route: 058
     Dates: start: 20061001
  3. GLUCOPHAGE [Concomitant]
     Indication: TYPE 2 DIABETES MELLITUS
     Dosage: UNK, 2/D
     Route: 048
  4. PLAVIX [Concomitant]
     Indication: STENT PLACEMENT
     Dosage: UNK, UNKNOWN
     Route: 048
  5. NEXIUM [Concomitant]
     Indication: ULCER
     Dosage: UNK, UNKNOWN
     Route: 048
  6. ACTOS [Concomitant]
     Indication: TYPE 2 DIABETES MELLITUS
     Dosage: UNK, UNKNOWN
     Route: 048
     Dates: end: 20070101
  7. ORAL ANTIDIABETICS [Concomitant]
     Indication: TYPE 2 DIABETES MELLITUS
     Dosage: UNK, UNKNOWN
     Route: 048
     Dates: start: 20090801, end: 20090801

REACTIONS (10)
  - DECREASED APPETITE [None]
  - DIARRHOEA [None]
  - EYE HAEMORRHAGE [None]
  - GLYCOSYLATED HAEMOGLOBIN INCREASED [None]
  - HUNGER [None]
  - POLYP [None]
  - PROCEDURAL PAIN [None]
  - THYROID FUNCTION TEST ABNORMAL [None]
  - VISUAL ACUITY REDUCED [None]
  - WEIGHT DECREASED [None]
